FAERS Safety Report 11246744 (Version 1)
Quarter: 2015Q3

REPORT INFORMATION
  Report Type: Spontaneous
  Country: BR (occurrence: BR)
  Receive Date: 20150708
  Receipt Date: 20150708
  Transmission Date: 20151125
  Serious: Yes (Hospitalization, Other)
  Sender: FDA-Public Use
  Company Number: PHHY2015BR081597

PATIENT
  Age: 34 Year
  Sex: Female

DRUGS (1)
  1. LEPONEX [Suspect]
     Active Substance: CLOZAPINE
     Indication: PRODUCT USED FOR UNKNOWN INDICATION
     Route: 065

REACTIONS (3)
  - General physical health deterioration [Unknown]
  - Urinary incontinence [Unknown]
  - Hallucination, auditory [Unknown]
